FAERS Safety Report 5478262-1 (Version None)
Quarter: 2007Q4

REPORT INFORMATION
  Report Type: 
  Country: None (occurrence: None)
  Receive Date: 20071005
  Receipt Date: 20070705
  Transmission Date: 20080405
  Serious: No
  Sender: FDA-Public Use
  Company Number: US-BRISTOL-MYERS SQUIBB COMPANY-13835343

PATIENT
  Age: 65 Year
  Sex: Female
  Weight: 93 kg

DRUGS (3)
  1. AVAPRO [Suspect]
  2. METFORMIN HCL [Concomitant]
  3. BUMEX [Concomitant]

REACTIONS (1)
  - MYALGIA [None]
